FAERS Safety Report 23893778 (Version 2)
Quarter: 2024Q2

REPORT INFORMATION
  Report Type: Spontaneous
  Country: US (occurrence: US)
  Receive Date: 20240524
  Receipt Date: 20240603
  Transmission Date: 20240716
  Serious: No
  Sender: FDA-Public Use
  Company Number: US-TEVA-VS-3197252

PATIENT
  Sex: Female

DRUGS (13)
  1. PROVIGIL [Suspect]
     Active Substance: MODAFINIL
     Indication: Product used for unknown indication
     Route: 065
  2. SODIUM OXYBATE [Suspect]
     Active Substance: SODIUM OXYBATE
     Indication: Narcolepsy
     Route: 065
  3. SODIUM OXYBATE [Suspect]
     Active Substance: SODIUM OXYBATE
     Indication: Narcolepsy
     Route: 065
  4. AMOXCLAV(AMOXICILLIN: CLAVULANIC ACID) [Concomitant]
     Route: 065
     Dates: start: 20170823
  5. STAHIST AD (CHLORCYCLIZINE HYDROCHLORIDE, PSEUDOEPHEDRINE HYDROCHLO... [Concomitant]
     Route: 065
     Dates: start: 20170823
  6. SULFAMETHOXAZOLE\TRIMETHOPRIM [Concomitant]
     Active Substance: SULFAMETHOXAZOLE\TRIMETHOPRIM
     Route: 065
     Dates: start: 20180604
  7. VALACYCLOVIR HYDROCHLORIDE [Concomitant]
     Active Substance: VALACYCLOVIR HYDROCHLORIDE
     Route: 065
     Dates: start: 20180604
  8. CETIRIZINE HCL [Concomitant]
     Active Substance: CETIRIZINE HYDROCHLORIDE
     Route: 065
     Dates: start: 20190311
  9. IMVEXXY [Concomitant]
     Active Substance: ESTRADIOL
     Route: 065
     Dates: start: 20190730
  10. PROCTOZONE HC [Concomitant]
     Active Substance: HYDROCORTISONE
     Route: 065
     Dates: start: 20170426
  11. VAGIFEM [Concomitant]
     Active Substance: ESTRADIOL
     Route: 065
     Dates: start: 20170426
  12. AZITHROMYCIN [Concomitant]
     Active Substance: AZITHROMYCIN
     Route: 065
     Dates: start: 20171116
  13. MUPIROCIN [Concomitant]
     Active Substance: MUPIROCIN
     Route: 065
     Dates: start: 20180604

REACTIONS (2)
  - Drug hypersensitivity [Unknown]
  - Product administration interrupted [Unknown]
